FAERS Safety Report 5896257-0 (Version None)
Quarter: 2008Q3

REPORT INFORMATION
  Report Type: 
  Country: None (occurrence: None)
  Receive Date: 20080924
  Receipt Date: 20080912
  Transmission Date: 20090109
  Serious: Yes (Other)
  Sender: FDA-Public Use
  Company Number: FR-PFIZER INC-2008064183

PATIENT
  Sex: Male

DRUGS (2)
  1. VFEND [Suspect]
     Indication: SCEDOSPORIUM INFECTION
     Route: 048
     Dates: start: 20080422, end: 20080722
  2. PIRIBEDIL [Concomitant]
     Route: 048

REACTIONS (4)
  - DERMATITIS BULLOUS [None]
  - ERYTHEMA [None]
  - PHOTOSENSITIVITY REACTION [None]
  - PORPHYRIA [None]
